FAERS Safety Report 18232860 (Version 1)
Quarter: 2020Q3

REPORT INFORMATION
  Report Type: Spontaneous
  Country: US (occurrence: US)
  Receive Date: 20200904
  Receipt Date: 20200904
  Transmission Date: 20201103
  Serious: Yes (Disabling)
  Sender: FDA-Public Use
  Company Number: None

PATIENT
  Age: 55 Year
  Sex: Female
  Weight: 60.75 kg

DRUGS (5)
  1. PRAMIPEXOLE (GENERIC) MIRAPEX [Suspect]
     Active Substance: PRAMIPEXOLE DIHYDROCHLORIDE
     Indication: RESTLESS LEGS SYNDROME
     Route: 048
     Dates: end: 20200901
  2. BIOTIN [Concomitant]
     Active Substance: BIOTIN
  3. PRAMIPEXOLE (GENERIC) MIRAPEX [Suspect]
     Active Substance: PRAMIPEXOLE DIHYDROCHLORIDE
     Indication: NEURALGIA
     Route: 048
     Dates: end: 20200901
  4. MAGNESIUM [Concomitant]
     Active Substance: MAGNESIUM
  5. OTC WOMEN^S VITAMINS [Concomitant]

REACTIONS (5)
  - Judgement impaired [None]
  - Gambling [None]
  - Shoplifting [None]
  - Alcohol use [None]
  - Amnesia [None]

NARRATIVE: CASE EVENT DATE: 20200501
